FAERS Safety Report 8418156-2 (Version None)
Quarter: 2012Q2

REPORT INFORMATION
  Report Type: 
  Country: None (occurrence: None)
  Receive Date: 20120607
  Receipt Date: 20120529
  Transmission Date: 20120825
  Serious: Yes (Other)
  Sender: FDA-Public Use
  Company Number: JP-VERTEX PHARMACEUTICALS INC.-AE-2012-008090

PATIENT
  Age: 27 Year
  Sex: Male

DRUGS (7)
  1. TELAVIC (TELAPREVIR) [Suspect]
     Route: 048
     Dates: start: 20120220, end: 20120508
  2. REBETOL [Concomitant]
     Route: 048
     Dates: start: 20120501
  3. TELAVIC (TELAPREVIR) [Suspect]
     Indication: HEPATITIS C
     Route: 048
     Dates: start: 20120214, end: 20120219
  4. REBETOL [Concomitant]
     Route: 048
     Dates: start: 20120307, end: 20120430
  5. PEGINTERFERON ALFA-2A [Concomitant]
     Indication: HEPATITIS C
     Route: 051
     Dates: start: 20120214
  6. CONFATANIN [Concomitant]
     Route: 048
     Dates: start: 20120213
  7. REBETOL [Concomitant]
     Indication: HEPATITIS C
     Route: 048
     Dates: start: 20120214, end: 20120306

REACTIONS (3)
  - RASH [None]
  - HYPERURICAEMIA [None]
  - PSYCHOSOMATIC DISEASE [None]
